FAERS Safety Report 20383541 (Version 2)
Quarter: 2022Q1

REPORT INFORMATION
  Report Type: Report from Study
  Country: BR (occurrence: BR)
  Receive Date: 20220127
  Receipt Date: 20220222
  Transmission Date: 20220423
  Serious: Yes (Life-Threatening, Hospitalization, Disabling, Other)
  Sender: FDA-Public Use
  Company Number: BR-TAKEDA-2022TUS004983

PATIENT
  Sex: Male

DRUGS (1)
  1. VEDOLIZUMAB [Suspect]
     Active Substance: VEDOLIZUMAB
     Indication: Colitis ulcerative
     Dosage: 300 MILLIGRAM
     Route: 042
     Dates: start: 20210722

REACTIONS (5)
  - Aspiration [Unknown]
  - COVID-19 [Unknown]
  - Asthenia [Not Recovered/Not Resolved]
  - Cardiac operation [Unknown]
  - Dementia Alzheimer^s type [Unknown]
